FAERS Safety Report 5230285-3 (Version None)
Quarter: 2007Q1

REPORT INFORMATION
  Report Type: 
  Country: None (occurrence: None)
  Receive Date: 20070206
  Receipt Date: 20061122
  Transmission Date: 20070707
  Serious: No
  Sender: FDA-Public Use
  Company Number: US-GLAXOSMITHKLINE-A0628373A

PATIENT
  Sex: Female

DRUGS (2)
  1. PAXIL CR [Suspect]
     Indication: ANXIETY DISORDER
     Dosage: 25MG PER DAY
     Route: 048
     Dates: start: 20060101
  2. BUSPAR [Concomitant]
     Dosage: 15MG TWICE PER DAY
     Route: 048

REACTIONS (2)
  - ANXIETY [None]
  - DRUG INEFFECTIVE [None]
